FAERS Safety Report 13048658 (Version 1)
Quarter: 2016Q4

REPORT INFORMATION
  Report Type: Spontaneous
  Country: US (occurrence: US)
  Receive Date: 20161221
  Receipt Date: 20161221
  Transmission Date: 20170207
  Serious: Yes (Other)
  Sender: FDA-Public Use
  Company Number: US-STRIDES ARCOLAB LIMITED-2016SP020134

PATIENT

DRUGS (1)
  1. TACROLIMUS. [Suspect]
     Active Substance: TACROLIMUS
     Indication: RENAL TRANSPLANT
     Dosage: UNK

REACTIONS (5)
  - Pulmonary alveolar haemorrhage [Recovered/Resolved]
  - Cough [Unknown]
  - Pyrexia [Unknown]
  - Histoplasmosis disseminated [Unknown]
  - Respiratory failure [Unknown]
